FAERS Safety Report 5711740-6 (Version None)
Quarter: 2008Q2

REPORT INFORMATION
  Report Type: 
  Country: None (occurrence: None)
  Receive Date: 20080421
  Receipt Date: 20080410
  Transmission Date: 20081010
  Serious: Yes (Other)
  Sender: FDA-Public Use
  Company Number: PHHY2008IT05245

PATIENT

DRUGS (3)
  1. PREDNISONE [Concomitant]
  2. ALKERAN [Concomitant]
  3. ZOMETA [Suspect]
     Indication: MULTIPLE MYELOMA
     Dosage: 4 MG, QMO
     Route: 042
     Dates: start: 20041008, end: 20050731

REACTIONS (1)
  - OSTEONECROSIS [None]
